FAERS Safety Report 24288815 (Version 6)
Quarter: 2024Q4

REPORT INFORMATION
  Report Type: Spontaneous
  Country: US (occurrence: US)
  Receive Date: 20240906
  Receipt Date: 20241219
  Transmission Date: 20250115
  Serious: No
  Sender: BIOGEN
  Company Number: US-BIOGEN-2024BI01280066

PATIENT
  Age: 73 Year
  Sex: Female

DRUGS (1)
  1. TYSABRI [Suspect]
     Active Substance: NATALIZUMAB
     Indication: Multiple sclerosis
     Route: 050
     Dates: start: 20110803, end: 20240524

REACTIONS (8)
  - Malaise [Not Recovered/Not Resolved]
  - White blood cell count decreased [Unknown]
  - Blood immunoglobulin E decreased [Unknown]
  - Blood immunoglobulin G decreased [Unknown]
  - Anaemia [Unknown]
  - Pneumonia [Unknown]
  - Diarrhoea [Unknown]
  - Influenza [Unknown]

NARRATIVE: CASE EVENT DATE: 20240718
